FAERS Safety Report 13798073 (Version 3)
Quarter: 2017Q3

REPORT INFORMATION
  Report Type: Spontaneous
  Country: US (occurrence: US)
  Receive Date: 20170727
  Receipt Date: 20170921
  Transmission Date: 20171127
  Serious: No
  Sender: FDA-Public Use
  Company Number: US-PFIZER INC-2017323848

PATIENT
  Age: 69 Year
  Sex: Male
  Weight: 85 kg

DRUGS (1)
  1. PREGABALIN. [Suspect]
     Active Substance: PREGABALIN
     Indication: NEUROPATHY PERIPHERAL
     Dosage: 100 MG, 3X/DAY
     Route: 048
     Dates: start: 201611

REACTIONS (4)
  - Blood triglycerides increased [Unknown]
  - Blood cholesterol increased [Unknown]
  - Drug effect incomplete [Unknown]
  - Weight increased [Unknown]

NARRATIVE: CASE EVENT DATE: 201611
